FAERS Safety Report 16576899 (Version 1)
Quarter: 2019Q3

REPORT INFORMATION
  Report Type: Spontaneous
  Country: ES (occurrence: ES)
  Receive Date: 20190716
  Receipt Date: 20190716
  Transmission Date: 20191004
  Serious: Yes (Other)
  Sender: FDA-Public Use
  Company Number: ES-TEVA-2019-ES-1077006

PATIENT
  Age: 91 Year
  Sex: Male
  Weight: 95 kg

DRUGS (5)
  1. CANDESARTAN/HIDROCLOROTIAZIDA 16MG/12,5MG 28 COMPRIMIDOS [Concomitant]
     Indication: HYPERTENSION
     Dosage: 1 TABLET IN THE MORNING
     Route: 048
     Dates: start: 20161116, end: 20190517
  2. TAMSULOSINA 0,4 MG 30 COMPRIMIDOS LIBERACION 4 MG ORAL COMPRIMIDOS DE [Concomitant]
     Indication: BENIGN PROSTATIC HYPERPLASIA
     Dosage: PROSTATA
     Route: 048
     Dates: start: 20120314
  3. CANDESARTAN/HIDROCLOROTIAZIDA 8 MG/12,5 MG 28 COMPRIMIDOS [Concomitant]
     Indication: HYPERTENSION
     Dosage: 1 TABLET IN THE MORNING
     Route: 048
     Dates: start: 20190517
  4. BISOPROLOL 2,5 MG 28 COMPRIMIDOS 2,5 MG ORAL COMPRIMIDOS [Suspect]
     Active Substance: BISOPROLOL
     Indication: ATRIAL FIBRILLATION
     Dosage: 1 TABLET IN THE MORNING REDUCED DOSE TO MEDIA PASTILLA
     Route: 048
     Dates: start: 20190517, end: 20190608
  5. TOVIAZ 8 MG COMPRIMIDOS DE LIBERACION ORAL GRADUAL [Concomitant]
     Indication: URINARY INCONTINENCE
     Dosage: 1 PASTILLA PARA CENAR
     Route: 050
     Dates: start: 20181115

REACTIONS (2)
  - Cardiac failure acute [Recovered/Resolved]
  - Bradycardia [Recovered/Resolved]

NARRATIVE: CASE EVENT DATE: 20190603
